FAERS Safety Report 23770499 (Version 2)
Quarter: 2024Q2

REPORT INFORMATION
  Report Type: Spontaneous
  Country: US (occurrence: US)
  Receive Date: 20240422
  Receipt Date: 20240517
  Transmission Date: 20240716
  Serious: Yes (Other)
  Sender: FDA-Public Use
  Company Number: US-LANTHEUS-LMI-2024-00473

PATIENT
  Age: 6 Decade
  Sex: Male

DRUGS (1)
  1. DEFINITY [Suspect]
     Active Substance: PERFLUTREN
     Indication: Product used for unknown indication
     Dosage: 2 MILLILITRE (2 ML OF DEFINITY PREPARED IN 8 ML DILUENT)
     Route: 042
     Dates: start: 202403, end: 202403

REACTIONS (5)
  - Musculoskeletal stiffness [Recovered/Resolved]
  - Depressed level of consciousness [Recovered/Resolved]
  - Hypersensitivity [Recovered/Resolved]
  - Ocular hyperaemia [Recovered/Resolved]
  - Aphasia [Recovered/Resolved]

NARRATIVE: CASE EVENT DATE: 20240301
